FAERS Safety Report 12135672 (Version 2)
Quarter: 2017Q1

REPORT INFORMATION
  Report Type: Spontaneous
  Country: US (occurrence: US)
  Receive Date: 20160302
  Receipt Date: 20170320
  Transmission Date: 20170428
  Serious: Yes (Other)
  Sender: FDA-Public Use
  Company Number: US-JNJFOC-20160216431

PATIENT
  Age: 20 Year
  Sex: Male

DRUGS (7)
  1. INVEGA [Suspect]
     Active Substance: PALIPERIDONE
     Indication: BIPOLAR DISORDER
     Dosage: IN VARYING DOSES OF 6 TO 9 MG
     Route: 048
     Dates: start: 2007, end: 2008
  2. RISPERIDONE. [Suspect]
     Active Substance: RISPERIDONE
     Indication: PRODUCT USED FOR UNKNOWN INDICATION
     Route: 065
  3. RISPERDAL [Suspect]
     Active Substance: RISPERIDONE
     Indication: BIPOLAR DISORDER
     Route: 048
     Dates: start: 2006, end: 2007
  4. RISPERDAL [Suspect]
     Active Substance: RISPERIDONE
     Indication: BIPOLAR DISORDER
     Route: 048
     Dates: end: 201312
  5. RISPERDAL [Suspect]
     Active Substance: RISPERIDONE
     Indication: BIPOLAR DISORDER
     Dosage: IN VARYING DOSES OF 2 TO 3 MG
     Route: 048
     Dates: start: 2009, end: 2012
  6. INVEGA [Suspect]
     Active Substance: PALIPERIDONE
     Indication: BIPOLAR DISORDER
     Dosage: IN VARYING DOSES OF 6 TO 9 MG
     Route: 048
     Dates: start: 2009
  7. INVEGA [Suspect]
     Active Substance: PALIPERIDONE
     Indication: BIPOLAR DISORDER
     Dosage: IN VARYING DOSES OF 6 TO 9 MG
     Route: 048
     Dates: start: 2006

REACTIONS (2)
  - Gynaecomastia [Unknown]
  - Obesity [Not Recovered/Not Resolved]

NARRATIVE: CASE EVENT DATE: 20131231
